FAERS Safety Report 16017576 (Version 1)
Quarter: 2019Q2

REPORT INFORMATION
  Report Type: Spontaneous
  Country: US (occurrence: US)
  Receive Date: 20190228
  Receipt Date: 20190228
  Transmission Date: 20190711
  Serious: No
  Sender: FDA-Public Use
  Company Number: None

PATIENT
  Age: 39 Year
  Sex: Male
  Weight: 139.5 kg

DRUGS (2)
  1. SINGULAIR [Suspect]
     Active Substance: MONTELUKAST SODIUM
     Indication: ASTHMA
     Dosage: ?          QUANTITY:1 TABLET(S);?
     Route: 048
  2. PREDNISONE. [Suspect]
     Active Substance: PREDNISONE

REACTIONS (3)
  - Irritability [None]
  - Mood swings [None]
  - Fatigue [None]

NARRATIVE: CASE EVENT DATE: 20190225
